FAERS Safety Report 6599783-4 (Version None)
Quarter: 2010Q1

REPORT INFORMATION
  Report Type: 
  Country: None (occurrence: None)
  Receive Date: 20100224
  Receipt Date: 20100222
  Transmission Date: 20100710
  Serious: Yes (Life-Threatening)
  Sender: FDA-Public Use
  Company Number: PHHY2010SE10229

PATIENT
  Sex: Male

DRUGS (8)
  1. EXELON [Suspect]
     Indication: DEMENTIA
     Dosage: 4.6 MG, QD
     Dates: start: 20090815, end: 20091030
  2. CIPRALEX                                /DEN/ [Concomitant]
  3. CRESTOR [Concomitant]
  4. REMINYL                                 /UNK/ [Concomitant]
  5. ENALAPRIL MALEATE [Concomitant]
  6. TROMBYL [Concomitant]
  7. KREDEX [Concomitant]
  8. IMOVANE [Concomitant]

REACTIONS (2)
  - MYOCARDIAL INFARCTION [None]
  - PERCUTANEOUS CORONARY INTERVENTION [None]
